FAERS Safety Report 9188319 (Version 1)
Quarter: 2013Q1

REPORT INFORMATION
  Report Type: Spontaneous
  Country: US (occurrence: US)
  Receive Date: 20130325
  Receipt Date: 20130325
  Transmission Date: 20140127
  Serious: No
  Sender: FDA-Public Use
  Company Number: US-MYLANLABS-2012S1019434

PATIENT
  Age: 59 Year
  Sex: Female

DRUGS (21)
  1. FENTANYL TRANSDERMAL SYSTEM [Suspect]
     Indication: FIBROMYALGIA
     Dosage: Q 72 HOURS
     Route: 062
     Dates: start: 201201, end: 201208
  2. FENTANYL TRANSDERMAL SYSTEM [Suspect]
     Indication: RAYNAUD^S PHENOMENON
     Dosage: Q 72 HOURS
     Route: 062
     Dates: start: 201201, end: 201208
  3. FENTANYL TRANSDERMAL SYSTEM [Suspect]
     Indication: PAIN IN EXTREMITY
     Dosage: Q 72 HOURS
     Route: 062
     Dates: start: 201201, end: 201208
  4. FENTANYL TRANSDERMAL SYSTEM [Suspect]
     Indication: FIBROMYALGIA
     Dosage: Q 72 HOURS
     Route: 062
     Dates: start: 201201, end: 201208
  5. FENTANYL TRANSDERMAL SYSTEM [Suspect]
     Indication: RAYNAUD^S PHENOMENON
     Dosage: Q 72 HOURS
     Route: 062
     Dates: start: 201201, end: 201208
  6. FENTANYL TRANSDERMAL SYSTEM [Suspect]
     Indication: PAIN IN EXTREMITY
     Dosage: Q 72 HOURS
     Route: 062
     Dates: start: 201201, end: 201208
  7. FENTANYL TRANSDERMAL SYSTEM [Suspect]
     Indication: FIBROMYALGIA
     Dosage: Q72HRS
     Route: 062
     Dates: start: 201208
  8. FENTANYL TRANSDERMAL SYSTEM [Suspect]
     Indication: RAYNAUD^S PHENOMENON
     Dosage: Q72HRS
     Route: 062
     Dates: start: 201208
  9. FENTANYL TRANSDERMAL SYSTEM [Suspect]
     Indication: PAIN IN EXTREMITY
     Dosage: Q72HRS
     Route: 062
     Dates: start: 201208
  10. XANAX [Concomitant]
  11. NEURONTIN [Concomitant]
  12. VICODIN [Concomitant]
  13. MODURETIC [Concomitant]
  14. PROZAC [Concomitant]
  15. WELLBUTRIN SR [Concomitant]
  16. STOOL SOFTENER [Concomitant]
  17. FIBER THERAPY [Concomitant]
  18. CENTRUM [Concomitant]
  19. D3 [Concomitant]
  20. BIOTIN [Concomitant]
  21. ALLEGRA [Concomitant]

REACTIONS (5)
  - Drug withdrawal syndrome [Recovered/Resolved]
  - Asthenia [Not Recovered/Not Resolved]
  - Constipation [Not Recovered/Not Resolved]
  - Back pain [Not Recovered/Not Resolved]
  - Memory impairment [Recovering/Resolving]
